FAERS Safety Report 5945701-9 (Version None)
Quarter: 2008Q4

REPORT INFORMATION
  Report Type: 
  Country: None (occurrence: None)
  Receive Date: 20081105
  Receipt Date: 20081021
  Transmission Date: 20090506
  Serious: Yes (Hospitalization)
  Sender: FDA-Public Use
  Company Number: DSM-2008-00945

PATIENT
  Age: 94 Year
  Sex: Female

DRUGS (8)
  1. COOLMETEC (HYDROCHLOROTHIAZIDE, OLMESARTAN MEDOXOMIL) (TABLET) (HYDROC [Suspect]
     Indication: HYPERTENSION
     Dosage: 1 IN 1 D, ORAL
     Route: 048
     Dates: end: 20080703
  2. ALDACTONE [Suspect]
     Indication: HYPERTENSION
     Dosage: 25 MG (25 MG, 1 IN 1 D), ORAL
     Route: 048
     Dates: end: 20080711
  3. INEXIUM (ESOMEPRAZOLE) (TABLET) (ESOMEPRAZOLE) [Suspect]
     Dosage: ORAL
     Route: 048
     Dates: end: 20080710
  4. IKOREL (NICORANDIL) (NICORANDIL) [Concomitant]
  5. PLAVIX [Concomitant]
  6. TRINIPATCH (GLYCER TRINITRATE) (GLYCERYL TRINITRATE) [Concomitant]
  7. MEPRONIZINE (MEPROBAMATE, ACEPROMETAZINE) (MEPROBAMATE, ACEPROMETAZINE [Concomitant]
  8. HYDREA (HYDROXYCARBAMIDE) (HYDROXYCARBAMIDE) [Concomitant]

REACTIONS (2)
  - FALL [None]
  - HYPONATRAEMIA [None]
